FAERS Safety Report 6736112-7 (Version None)
Quarter: 2010Q2

REPORT INFORMATION
  Report Type: 
  Country: None (occurrence: None)
  Receive Date: 20100521
  Receipt Date: 20100518
  Transmission Date: 20101027
  Serious: Yes (Hospitalization)
  Sender: FDA-Public Use
  Company Number: US-JNJCH-2010012073

PATIENT
  Sex: Female

DRUGS (3)
  1. CHILDREN'S ZYRTEC ALLERGY [Suspect]
     Indication: DRUG USE FOR UNKNOWN INDICATION
     Dosage: TEXT:UNKNOWN
     Route: 048
  2. TYLENOL [Suspect]
     Indication: DRUG USE FOR UNKNOWN INDICATION
     Dosage: TEXT:UNKNOWN
     Route: 048
  3. MOTRIN [Suspect]
     Indication: DRUG USE FOR UNKNOWN INDICATION
     Dosage: TEXT:UNKNOWN
     Route: 048

REACTIONS (2)
  - CONVULSION [None]
  - PRODUCT QUALITY ISSUE [None]
